FAERS Safety Report 16214301 (Version 2)
Quarter: 2019Q2

REPORT INFORMATION
  Report Type: Spontaneous
  Country: US (occurrence: US)
  Receive Date: 20190418
  Receipt Date: 20190425
  Transmission Date: 20190711
  Serious: Yes (Other)
  Sender: FDA-Public Use
  Company Number: US-MALLINCKRODT-T201903093

PATIENT
  Age: 42 Year
  Sex: Female

DRUGS (3)
  1. RITUXIMAB. [Suspect]
     Active Substance: RITUXIMAB
     Indication: TRANSPLANT REJECTION
     Dosage: UNK
     Route: 065
  2. UVADEX [Suspect]
     Active Substance: METHOXSALEN
     Indication: TRANSPLANT REJECTION
     Dosage: UNK
     Route: 050
  3. BORTEZOMIB. [Suspect]
     Active Substance: BORTEZOMIB
     Indication: TRANSPLANT REJECTION
     Dosage: UNK
     Route: 065

REACTIONS (2)
  - Infection [Unknown]
  - Product use in unapproved indication [Unknown]

NARRATIVE: CASE EVENT DATE: 2018
